FAERS Safety Report 5291033-4 (Version None)
Quarter: 2007Q2

REPORT INFORMATION
  Report Type: 
  Country: None (occurrence: None)
  Receive Date: 20070405
  Receipt Date: 20070405
  Transmission Date: 20071010
  Serious: Yes (Life-Threatening, Hospitalization, Disabling)
  Sender: FDA-Public Use
  Company Number: None

PATIENT
  Age: 14 Day
  Sex: Male

DRUGS (1)
  1. IBUPROFEN LYSINE 20 MG/ML OVATION [Suspect]
     Indication: PATENT DUCTUS ARTERIOSUS
     Dosage: 10 MG/KG ONCE IV 5 MG/KG TIMES TWO DOSES IV
     Route: 042
     Dates: start: 20061013, end: 20061014

REACTIONS (1)
  - GASTRIC PERFORATION [None]
